FAERS Safety Report 4370854-6 (Version None)
Quarter: 2004Q2

REPORT INFORMATION
  Report Type: 
  Country: None (occurrence: None)
  Receive Date: 20040526
  Receipt Date: 20040514
  Transmission Date: 20050107
  Serious: Yes (Hospitalization)
  Sender: FDA-Public Use
  Company Number: 2004-114926-NL

PATIENT
  Age: 82 Year
  Sex: Female

DRUGS (7)
  1. MIRTAZAPINE [Suspect]
     Indication: MAJOR DEPRESSION
     Dosage: 15 MG QD
     Route: 048
     Dates: start: 20031216, end: 20040227
  2. DIGOXIN [Concomitant]
  3. RAMIPRIL [Concomitant]
  4. BUFLOMEDIL HYDROCHLORIDE [Concomitant]
  5. LEVOTHYROXINE SODIUM [Concomitant]
  6. DIOSMIN [Concomitant]
  7. ACENOCOUMAROL [Concomitant]

REACTIONS (3)
  - ANAEMIA [None]
  - NEUTROPENIA [None]
  - THROMBOCYTHAEMIA [None]
